FAERS Safety Report 19042173 (Version 2)
Quarter: 2021Q1

REPORT INFORMATION
  Report Type: Spontaneous
  Country: AU (occurrence: AU)
  Receive Date: 20210322
  Receipt Date: 20210325
  Transmission Date: 20210420
  Serious: Yes (Other)
  Sender: FDA-Public Use
  Company Number: NVSC2021AU056405

PATIENT
  Sex: Female

DRUGS (3)
  1. EVEROLIMUS. [Suspect]
     Active Substance: EVEROLIMUS
     Indication: NEUROFIBROMA
     Dosage: UNK
     Route: 065
  2. BOTULINUM TOXIN [Concomitant]
     Active Substance: BOTULINUM TOXIN NOS
     Indication: PRODUCT USED FOR UNKNOWN INDICATION
     Dosage: UNK
     Route: 065
  3. SIROLIMUS. [Suspect]
     Active Substance: SIROLIMUS
     Indication: NEUROFIBROMA
     Dosage: UNK
     Route: 065

REACTIONS (8)
  - Obstructive airways disorder [Unknown]
  - Neurofibroma [Unknown]
  - Deformity [Unknown]
  - Disability [Unknown]
  - Drug intolerance [Unknown]
  - General physical health deterioration [Unknown]
  - Headache [Unknown]
  - Pain [Unknown]
